FAERS Safety Report 4559449-9 (Version None)
Quarter: 2005Q1

REPORT INFORMATION
  Report Type: 
  Country: None (occurrence: None)
  Receive Date: 20050124
  Receipt Date: 20050117
  Transmission Date: 20050727
  Serious: Yes (Other)
  Sender: FDA-Public Use
  Company Number: US-JNJFOC-20040909135

PATIENT
  Sex: Male
  Weight: 91.17 kg

DRUGS (3)
  1. TOPAMAX [Suspect]
     Route: 049
     Dates: start: 20040317, end: 20041004
  2. METHADONE HCL [Concomitant]
     Indication: PAIN
     Dosage: AS NEEDED
  3. TEGRETOL-XR [Concomitant]

REACTIONS (9)
  - ARTERIAL OCCLUSIVE DISEASE [None]
  - CARDIAC DISORDER [None]
  - CARDIOMYOPATHY [None]
  - CHEST PAIN [None]
  - NECK PAIN [None]
  - PAIN IN JAW [None]
  - SEDATION [None]
  - SOMNOLENCE [None]
  - STRESS [None]
